FAERS Safety Report 10100987 (Version 4)
Quarter: 2014Q2

REPORT INFORMATION
  Report Type: Spontaneous
  Country: CA (occurrence: CA)
  Receive Date: 20140424
  Receipt Date: 20140616
  Transmission Date: 20141212
  Serious: Yes (Other)
  Sender: FDA-Public Use
  Company Number: CA-PFIZER INC-2013351311

PATIENT
  Sex: Female

DRUGS (4)
  1. XALATAN [Suspect]
     Dosage: UNK
     Dates: start: 201205
  2. XALATAN [Suspect]
  3. XALATAN [Suspect]
  4. XALATAN [Suspect]

REACTIONS (6)
  - Visual acuity reduced [Unknown]
  - Eye irritation [Unknown]
  - Eye pain [Unknown]
  - Product quality issue [Unknown]
  - Influenza like illness [Unknown]
  - Nasopharyngitis [Unknown]
